FAERS Safety Report 9411524 (Version 1)
Quarter: 2013Q3

REPORT INFORMATION
  Report Type: Spontaneous
  Country: US (occurrence: None)
  Receive Date: 20130718
  Receipt Date: 20130718
  Transmission Date: 20140515
  Serious: Yes (Other)
  Sender: FDA-Public Use
  Company Number: None

PATIENT
  Age: 56 Year
  Sex: Female
  Weight: 65.77 kg

DRUGS (1)
  1. CIPROFLOXACIN [Suspect]
     Indication: URINARY TRACT INFECTION
     Dosage: 1,BID,BY MOUTH
     Route: 048
     Dates: start: 20130613, end: 20130623

REACTIONS (4)
  - Anxiety [None]
  - Depression [None]
  - Eczema [None]
  - Arthropathy [None]
